FAERS Safety Report 4602962-6 (Version None)
Quarter: 2005Q1

REPORT INFORMATION
  Report Type: 
  Country: None (occurrence: None)
  Receive Date: 20050307
  Receipt Date: 20050210
  Transmission Date: 20050727
  Serious: Yes (Death)
  Sender: FDA-Public Use
  Company Number: B0370903A

PATIENT
  Age: 57 Year
  Sex: Male

DRUGS (5)
  1. LITHIUM SALT (GENERIC) (LITHIUM SALT) [Suspect]
     Indication: BIPOLAR I DISORDER
  2. OLANZAPINE [Suspect]
     Indication: BIPOLAR I DISORDER
  3. METHOTRIMEPRAZINE (METHOTRIMEPRAZINE) [Suspect]
     Indication: BIPOLAR I DISORDER
  4. TROPATEPINE HYDROCHLORIDE (TROPATEPINE HYDROCHLORIDE) [Suspect]
     Indication: BIPOLAR I DISORDER
  5. CLOMIPRAMINE HCL [Suspect]
     Indication: BIPOLAR I DISORDER

REACTIONS (5)
  - ARRHYTHMIA [None]
  - CARDIAC DISORDER [None]
  - MITRAL VALVE PROLAPSE [None]
  - SUDDEN DEATH [None]
  - VENTRICULAR HYPERTROPHY [None]
